FAERS Safety Report 20429572 (Version 1)
Quarter: 2022Q1

REPORT INFORMATION
  Report Type: Report from Study
  Country: FR (occurrence: FR)
  Receive Date: 20220204
  Receipt Date: 20220204
  Transmission Date: 20220423
  Serious: Yes (Hospitalization)
  Sender: FDA-Public Use
  Company Number: FR-SERVIER-S19006354

PATIENT

DRUGS (9)
  1. ONCASPAR [Suspect]
     Active Substance: PEGASPARGASE
     Indication: Acute lymphocytic leukaemia
     Dosage: 1425 IU (2500 IU/M2) QD, ON DAY 4
     Route: 042
     Dates: start: 20190308, end: 20190308
  2. DOXORUBICIN [Suspect]
     Active Substance: DOXORUBICIN
     Indication: Acute lymphocytic leukaemia
     Dosage: 17.2 MG, QD, D1, D8, D15, D22
     Route: 042
     Dates: start: 20190305
  3. VINCRISTINE [Suspect]
     Active Substance: VINCRISTINE
     Indication: Acute lymphocytic leukaemia
     Dosage: 0.85 MG, QD, D1, D8, D15, D22
     Route: 042
     Dates: start: 20190305
  4. CYTARABINE [Suspect]
     Active Substance: CYTARABINE
     Indication: Acute lymphocytic leukaemia
     Dosage: 30 MG, QD, ON D4, D31
     Route: 037
     Dates: start: 20190308
  5. HYDROCORTISONE [Suspect]
     Active Substance: HYDROCORTISONE
     Indication: Acute lymphocytic leukaemia
     Dosage: 15 MG, QD, ON D4, D31
     Route: 037
     Dates: start: 20190308
  6. METHOTREXATE [Suspect]
     Active Substance: METHOTREXATE
     Indication: Acute lymphocytic leukaemia
     Dosage: 12 MG, QD, ON D4, D31
     Route: 037
     Dates: start: 20190308
  7. DEXAMETHASONE [Suspect]
     Active Substance: DEXAMETHASONE
     Indication: Acute lymphocytic leukaemia
     Dosage: 5 MG, QD, D1 TO D7, D15 TO D21
     Route: 048
     Dates: start: 20190305, end: 20190325
  8. KETAMINE [Concomitant]
     Active Substance: KETAMINE
     Indication: Pain
     Dosage: 7 MG, QD
     Route: 042
     Dates: start: 20190401, end: 20190406
  9. MORPHINE [Concomitant]
     Active Substance: MORPHINE
     Indication: Pain
     Dosage: 100 MG, QD
     Route: 042
     Dates: start: 20190328, end: 20190409

REACTIONS (3)
  - Herpes simplex [Recovered/Resolved]
  - Eye movement disorder [Recovered/Resolved]
  - Pyelonephritis [Recovered/Resolved]

NARRATIVE: CASE EVENT DATE: 20190401
